FAERS Safety Report 7415662-4 (Version None)
Quarter: 2011Q2

REPORT INFORMATION
  Report Type: 
  Country: None (occurrence: None)
  Receive Date: 20110414
  Receipt Date: 20110407
  Transmission Date: 20111010
  Serious: Yes (Hospitalization)
  Sender: FDA-Public Use
  Company Number: CO-CUBIST-2011S1000272

PATIENT
  Age: 18 Year
  Sex: Male

DRUGS (4)
  1. CUBICIN [Suspect]
     Route: 042
     Dates: start: 20110121, end: 20110131
  2. CUBICIN [Suspect]
     Indication: CELLULITIS
     Route: 042
     Dates: start: 20110121, end: 20110131
  3. PIPERACILLIN AND TAZOBACTAM [Concomitant]
     Indication: PRODUCT USED FOR UNKNOWN INDICATION
     Route: 065
     Dates: start: 20110221, end: 20110228
  4. FLUCONAZOLE [Concomitant]
     Indication: PRODUCT USED FOR UNKNOWN INDICATION
     Route: 065
     Dates: start: 20110221, end: 20110228

REACTIONS (3)
  - BACTERAEMIA [None]
  - ACUTE LYMPHOCYTIC LEUKAEMIA [None]
  - CONCOMITANT DISEASE PROGRESSION [None]
